FAERS Safety Report 24961578 (Version 3)
Quarter: 2025Q2

REPORT INFORMATION
  Report Type: Spontaneous
  Country: CH (occurrence: CH)
  Receive Date: 20250212
  Receipt Date: 20250415
  Transmission Date: 20250717
  Serious: Yes (Other)
  Sender: SANDOZ
  Company Number: CH-002147023-PHHY2019CH026967

PATIENT
  Age: 74 Year
  Sex: Female
  Weight: 78 kg

DRUGS (11)
  1. ANASTROZOLE [Suspect]
     Active Substance: ANASTROZOLE
     Indication: Hormone receptor positive HER2 negative breast cancer
     Route: 048
     Dates: start: 20190111
  2. RIBOCICLIB [Suspect]
     Active Substance: RIBOCICLIB
     Indication: Breast cancer
     Route: 048
     Dates: start: 20190111, end: 20190723
  3. Acetylcystein Teva [Concomitant]
     Indication: Chronic obstructive pulmonary disease
     Route: 048
     Dates: start: 20181202
  4. Acetylcystein Teva [Concomitant]
     Route: 048
     Dates: start: 20180110
  5. AMLODIPINE BESYLATE [Concomitant]
     Active Substance: AMLODIPINE BESYLATE
     Indication: Hypertonia
     Route: 048
     Dates: start: 20181202
  6. Baclofenum [Concomitant]
     Indication: Product used for unknown indication
     Route: 048
  7. CANDESARTAN CILEXETIL\HYDROCHLOROTHIAZIDE [Concomitant]
     Active Substance: CANDESARTAN CILEXETIL\HYDROCHLOROTHIAZIDE
     Indication: Hypertonia
     Route: 048
     Dates: start: 1970
  8. LOPERAMIDE HYDROCHLORIDE [Concomitant]
     Active Substance: LOPERAMIDE HYDROCHLORIDE
     Indication: Diarrhoea
     Route: 048
     Dates: start: 20181203
  9. METAMIZOLE SODIUM [Concomitant]
     Active Substance: METAMIZOLE SODIUM
     Indication: Product used for unknown indication
     Route: 048
     Dates: start: 20181202
  10. METOPROLOL SUCCINATE [Concomitant]
     Active Substance: METOPROLOL SUCCINATE
     Indication: Hypertonia
     Route: 048
     Dates: start: 1971
  11. PANTOZOL [Concomitant]
     Active Substance: PANTOPRAZOLE SODIUM
     Indication: Product used for unknown indication
     Route: 048
     Dates: start: 20181224

REACTIONS (12)
  - Leukopenia [Recovered/Resolved]
  - Neutropenia [Recovered/Resolved]
  - Lymphocyte count decreased [Recovered/Resolved]
  - Anaemia [Not Recovered/Not Resolved]
  - Weight decreased [Recovering/Resolving]
  - Muscle spasms [Unknown]
  - Dyspnoea exertional [Unknown]
  - Peripheral swelling [Unknown]
  - Dizziness [Recovered/Resolved]
  - White blood cell count decreased [Recovered/Resolved]
  - Muscle twitching [Unknown]
  - Diarrhoea [Recovered/Resolved]

NARRATIVE: CASE EVENT DATE: 20190101
